FAERS Safety Report 17097211 (Version 1)
Quarter: 2019Q4

REPORT INFORMATION
  Report Type: Spontaneous
  Country: US (occurrence: US)
  Receive Date: 20191202
  Receipt Date: 20191202
  Transmission Date: 20200122
  Serious: Yes (Hospitalization, Other)
  Sender: FDA-Public Use
  Company Number: US-SCIEGEN PHARMACEUTICALS INC-2019SCILIT00369

PATIENT
  Age: 55 Year
  Sex: Male

DRUGS (2)
  1. CLOPIDOGREL [Suspect]
     Active Substance: CLOPIDOGREL BISULFATE
  2. ASPIRIN. [Suspect]
     Active Substance: ASPIRIN

REACTIONS (7)
  - Tachycardia [Recovered/Resolved]
  - Mediastinal haematoma [Recovered/Resolved]
  - Pleural effusion [Recovered/Resolved]
  - Tracheal haemorrhage [Recovered/Resolved]
  - Hypotension [Recovered/Resolved]
  - Haemothorax [Recovered/Resolved]
  - Cardiac dysfunction [Recovered/Resolved]
